FAERS Safety Report 4726869-9 (Version None)
Quarter: 2005Q3

REPORT INFORMATION
  Report Type: 
  Country: None (occurrence: None)
  Receive Date: 20050726
  Receipt Date: 20050614
  Transmission Date: 20060218
  Serious: Yes (Hospitalization)
  Sender: FDA-Public Use
  Company Number: 11610

PATIENT
  Age: 13 Year
  Sex: Male

DRUGS (5)
  1. METHOTREXATE [Suspect]
     Indication: ACUTE LEUKAEMIA
     Dosage: 5 G/M2 PER_CYCLE/12 MG PER_CYCLE/5000 MG PER_CYCLE IV/IT/IV/IT
     Dates: start: 20041130, end: 20041201
  2. METHOTREXATE [Suspect]
     Indication: ACUTE LEUKAEMIA
     Dosage: 5 G/M2 PER_CYCLE/12 MG PER_CYCLE/5000 MG PER_CYCLE IV/IT/IV/IT
     Dates: start: 20041130
  3. METHOTREXATE [Suspect]
     Indication: ACUTE LEUKAEMIA
     Dosage: 5 G/M2 PER_CYCLE/12 MG PER_CYCLE/5000 MG PER_CYCLE IV/IT/IV/IT
     Dates: start: 20041214
  4. METHOTREXATE [Suspect]
     Indication: ACUTE LEUKAEMIA
     Dosage: 5 G/M2 PER_CYCLE/12 MG PER_CYCLE/5000 MG PER_CYCLE IV/IT/IV/IT
     Dates: start: 20041214
  5. METHOTREXATE [Suspect]

REACTIONS (4)
  - DYSARTHRIA [None]
  - HYPOAESTHESIA [None]
  - NEUROTOXICITY [None]
  - PARAESTHESIA [None]
